FAERS Safety Report 8823535 (Version 1)
Quarter: 2012Q4

REPORT INFORMATION
  Report Type: 
  Country: GB (occurrence: GB)
  Receive Date: 20121003
  Receipt Date: 20121003
  Transmission Date: 20130627
  Serious: Yes (Other)
  Sender: FDA-Public Use
  Company Number: GB-ROCHE-1136269

PATIENT
  Age: 59 Year
  Sex: Male

DRUGS (2)
  1. ROFERON-A [Suspect]
     Indication: ESSENTIAL THROMBOCYTHAEMIA
     Route: 058
  2. ASPIRIN [Concomitant]

REACTIONS (1)
  - Guillain-Barre syndrome [Recovering/Resolving]
